FAERS Safety Report 6897738-3 (Version None)
Quarter: 2010Q3

REPORT INFORMATION
  Report Type: 
  Country: None (occurrence: None)
  Receive Date: 20100802
  Receipt Date: 20070717
  Transmission Date: 20110219
  Serious: No
  Sender: FDA-Public Use
  Company Number: US-PFIZER INC-2007060259

PATIENT
  Sex: Male
  Weight: 93.2 kg

DRUGS (6)
  1. LYRICA [Suspect]
     Indication: SPINAL COLUMN STENOSIS
     Dates: start: 20070714
  2. LYRICA [Suspect]
     Indication: PAIN IN EXTREMITY
  3. BACLOFEN [Concomitant]
  4. TIZANIDINE HCL [Concomitant]
  5. ZOLOFT [Concomitant]
  6. LIPITOR [Concomitant]

REACTIONS (3)
  - EYE MOVEMENT DISORDER [None]
  - VISION BLURRED [None]
  - VISUAL IMPAIRMENT [None]
